FAERS Safety Report 22173265 (Version 1)
Quarter: 2023Q2

REPORT INFORMATION
  Report Type: Spontaneous
  Country: FR (occurrence: FR)
  Receive Date: 20230404
  Receipt Date: 20230404
  Transmission Date: 20230722
  Serious: Yes (Hospitalization)
  Sender: FDA-Public Use
  Company Number: FR-AstraZeneca-2022-39989

PATIENT
  Age: 963 Month
  Sex: Male

DRUGS (24)
  1. OXALIPLATIN [Suspect]
     Active Substance: OXALIPLATIN
     Indication: Oesophageal carcinoma
     Dosage: 85.0 MG/M2  85 MG/M2 ON DAYS 1 AND 15 85 MG/M2 ON DAYS 1 AND 15 EVERY FOUR WEEKS
     Route: 042
     Dates: start: 20220302, end: 20220302
  2. OXALIPLATIN [Suspect]
     Active Substance: OXALIPLATIN
     Indication: Gastric cancer
  3. DOCETAXEL [Suspect]
     Active Substance: DOCETAXEL
     Indication: Gastric cancer
     Dosage: 50.0 MG/M2  50 MG/M2 ON DAYS 1 AND 15 50 MG/M2 ON DAYS 1 AND 15 EVERY FOUR WEEKS
     Route: 042
     Dates: start: 20220302, end: 20220302
  4. DOCETAXEL [Suspect]
     Active Substance: DOCETAXEL
     Indication: Oesophageal carcinoma
  5. FLUOROURACIL [Suspect]
     Active Substance: FLUOROURACIL
     Indication: Oesophageal carcinoma
     Dosage: 2600.0 MG/M2  2600 MG/M2 ON DAYS 1 AND 15 2600 MG/M2 ON DAYS 1 AND 15 EVERY FOUR WEEKS
     Route: 042
     Dates: start: 20220302, end: 20220303
  6. FLUOROURACIL [Suspect]
     Active Substance: FLUOROURACIL
     Indication: Gastric cancer
  7. SODIUM BICARBONATE SOLUTION 1,4 percent [Concomitant]
     Indication: Prophylaxis
     Dosage: 1.0 MOUTHWASH  THREE TIMES A DAY
     Dates: start: 20220302, end: 202203
  8. METOCLOPRAMIDE [Concomitant]
     Active Substance: METOCLOPRAMIDE
     Indication: Prophylaxis of nausea and vomiting
     Route: 048
     Dates: start: 20220302, end: 202203
  9. LEUCOVORIN [Concomitant]
     Active Substance: LEUCOVORIN
     Indication: Oesophageal carcinoma
     Dosage: 200.0 MG/M2  200 MG/M2 ON DAYS 1 AND 15 200 MG/M2 ON DAYS 1 AND 15 EVERY FOUR WEEKS
     Route: 042
     Dates: start: 20220302, end: 20220302
  10. LEUCOVORIN [Concomitant]
     Active Substance: LEUCOVORIN
     Indication: Gastric cancer
  11. PEGFILGRASTIM [Concomitant]
     Active Substance: PEGFILGRASTIM
     Indication: Prophylaxis
     Dosage: 6.0 MG  EVERY D2 OF EACH CYCLE OF CHEMOTHERAPY
     Route: 058
     Dates: start: 20220305, end: 20220428
  12. APREPITANT [Concomitant]
     Active Substance: APREPITANT
     Indication: Premedication
     Dosage: 80.0 MG  EVERY D2 OR D3 OF EVERY CYCLE OF CHEMOTHERAPY
     Route: 048
     Dates: start: 20220303, end: 20220304
  13. APREPITANT [Concomitant]
     Active Substance: APREPITANT
     Dosage: 125.0 MG  EVERY D1 OF EVERY CYCLE OF CHEMOTHERAPY
     Route: 048
     Dates: start: 20220302, end: 20220302
  14. MONTMORILLONITE [Concomitant]
     Active Substance: MONTMORILLONITE
     Indication: Prophylaxis against diarrhoea
     Route: 048
     Dates: start: 20220302, end: 202203
  15. HERBALS\SAW PALMETTO [Concomitant]
     Active Substance: HERBALS\SAW PALMETTO
     Indication: Benign prostatic hyperplasia
     Route: 048
     Dates: start: 2019
  16. EMOLLIENT CREAM (15 percent GLYCEROL - 8 percent VASELINE - 2 percent [Concomitant]
     Indication: Skin disorder prophylaxis
     Dosage: 1.0 APPLICATION  TWO TIMES A DAY
     Route: 061
     Dates: start: 20220302, end: 202203
  17. APIXABAN [Concomitant]
     Active Substance: APIXABAN
     Indication: Atrial fibrillation
     Route: 048
     Dates: start: 2019, end: 202203
  18. DIETARY SUPPLEMENT [Concomitant]
     Active Substance: DIETARY SUPPLEMENT
     Indication: Dysphagia
     Route: 048
     Dates: start: 202202
  19. ENOXAPARIN [Concomitant]
     Active Substance: ENOXAPARIN
     Indication: Thrombosis prophylaxis
     Dosage: 8000 IU
     Dates: start: 20220329, end: 20220404
  20. ENOXAPARIN [Concomitant]
     Active Substance: ENOXAPARIN
     Indication: Atrial fibrillation
  21. RACECADOTRIL [Concomitant]
     Active Substance: RACECADOTRIL
     Indication: Prophylaxis against diarrhoea
     Route: 048
     Dates: start: 20220302, end: 202203
  22. LANSOPRAZOLE [Concomitant]
     Active Substance: LANSOPRAZOLE
     Indication: Prophylaxis
     Dosage: 30
     Dates: start: 20220329, end: 20220504
  23. PREDNISOLONE [Concomitant]
     Active Substance: PREDNISOLONE
     Indication: Autoimmune hepatitis
     Dosage: 40.0 MG  EVERY D-1 AND D2 OF EACH CYCLE OF CHEMOTHERAPY
     Route: 048
     Dates: start: 20220301, end: 20220303
  24. PREDNISOLONE [Concomitant]
     Active Substance: PREDNISOLONE
     Indication: Premedication

REACTIONS (1)
  - Autoimmune hepatitis [Not Recovered/Not Resolved]

NARRATIVE: CASE EVENT DATE: 20220314
